FAERS Safety Report 6085636-7 (Version None)
Quarter: 2009Q1

REPORT INFORMATION
  Report Type: 
  Country: None (occurrence: None)
  Receive Date: 20090220
  Receipt Date: 20090217
  Transmission Date: 20090719
  Serious: Yes (Life-Threatening, Hospitalization, Other)
  Sender: FDA-Public Use
  Company Number: EG-ELI_LILLY_AND_COMPANY-EG200902004278

PATIENT
  Age: 55 Year
  Sex: Male
  Weight: 66 kg

DRUGS (4)
  1. ALIMTA [Suspect]
     Indication: PLEURAL MESOTHELIOMA MALIGNANT
     Dosage: 650 MG, EVERY 21 DAYS
     Route: 042
     Dates: start: 20090217, end: 20090217
  2. FOLIC ACID [Concomitant]
     Indication: SUPPLEMENTATION THERAPY
     Dosage: 500 UG, DAILY (1/D)
     Route: 065
  3. VITAMIN B-12 [Concomitant]
     Indication: SUPPLEMENTATION THERAPY
     Dosage: 1000 UG, PER NINE WEEKS
     Route: 065
  4. DEXAMETHASONE [Concomitant]
     Indication: SUPPLEMENTATION THERAPY
     Dosage: 8 MG, UNK
     Route: 065

REACTIONS (2)
  - CONVULSION [None]
  - METASTASES TO CENTRAL NERVOUS SYSTEM [None]
